FAERS Safety Report 23982272 (Version 1)
Quarter: 2024Q2

REPORT INFORMATION
  Report Type: Spontaneous
  Country: US (occurrence: None)
  Receive Date: 20240616
  Receipt Date: 20240616
  Transmission Date: 20240715
  Serious: No
  Sender: FDA-Public Use
  Company Number: None

PATIENT
  Age: 83 Year
  Sex: Female
  Weight: 63.45 kg

DRUGS (1)
  1. PROLIA [Suspect]
     Active Substance: DENOSUMAB
     Dates: start: 20240416

REACTIONS (5)
  - Pain [None]
  - Pain in extremity [None]
  - Pain [None]
  - Hypokinesia [None]
  - Asthenia [None]

NARRATIVE: CASE EVENT DATE: 20240416
